FAERS Safety Report 23172781 (Version 2)
Quarter: 2023Q4

REPORT INFORMATION
  Report Type: Report from Study
  Country: JP (occurrence: JP)
  Receive Date: 20231110
  Receipt Date: 20231114
  Transmission Date: 20240109
  Serious: Yes (Death, Other)
  Sender: FDA-Public Use
  Company Number: JP-ALXN-A202310152

PATIENT
  Age: 62 Year
  Sex: Female

DRUGS (12)
  1. ULTOMIRIS [Suspect]
     Active Substance: RAVULIZUMAB-CWVZ
     Indication: Myasthenia gravis
     Dosage: 2400 MG, SINGLE
     Route: 042
     Dates: start: 20230106, end: 20230106
  2. ULTOMIRIS [Suspect]
     Active Substance: RAVULIZUMAB-CWVZ
     Dosage: 3000 MILLIGRAM, Q56
     Route: 042
     Dates: start: 20230120, end: 20230707
  3. ULTOMIRIS [Suspect]
     Active Substance: RAVULIZUMAB-CWVZ
     Dosage: 3000 MILLIGRAM, Q56
     Route: 042
     Dates: start: 20230906, end: 20230906
  4. SOLIRIS [Suspect]
     Active Substance: ECULIZUMAB
     Indication: Myasthenia gravis
     Dosage: UNK
     Route: 042
     Dates: start: 20211126
  5. PREDONINE [Concomitant]
     Active Substance: PREDNISOLONE
     Indication: Myasthenia gravis
     Dosage: 5 MG, ONCE
     Route: 048
     Dates: start: 20230821, end: 20230906
  6. LEVOTHYROXINE [Concomitant]
     Active Substance: LEVOTHYROXINE
     Indication: Hypothyroidism
     Dosage: 75 ?G, ONCE
     Route: 048
     Dates: start: 20230821, end: 20230906
  7. LEVOTHYROXINE [Concomitant]
     Active Substance: LEVOTHYROXINE
     Dosage: 50 MICROGRAM
     Route: 048
     Dates: start: 20230821, end: 20230906
  8. NEXIUM [Concomitant]
     Active Substance: ESOMEPRAZOLE MAGNESIUM
     Indication: Myasthenia gravis
     Dosage: 20 MILLIGRAM
     Route: 048
     Dates: start: 20230821, end: 20230906
  9. ALFAROL [Concomitant]
     Active Substance: ALFACALCIDOL
     Indication: Myasthenia gravis
     Dosage: 0.5 MICROGRAM
     Route: 048
     Dates: start: 20230821, end: 20230906
  10. RISEDRONATE SODIUM [Concomitant]
     Active Substance: RISEDRONATE SODIUM
     Indication: Myasthenia gravis
     Dosage: 17.5 MILLIGRAM
     Route: 048
     Dates: start: 20230821, end: 20230906
  11. LEVOTHYROXINE SODIUM [Concomitant]
     Active Substance: LEVOTHYROXINE SODIUM
     Indication: Hyperthyroidism
     Dosage: 50 MICROGRAM
     Route: 048
     Dates: start: 20230821, end: 20230906
  12. LEVOTHYROXINE SODIUM [Concomitant]
     Active Substance: LEVOTHYROXINE SODIUM
     Dosage: 25 MICROGRAM
     Route: 048
     Dates: start: 20230821, end: 20230906

REACTIONS (5)
  - Thymoma malignant [Fatal]
  - Malignant neoplasm progression [Fatal]
  - Metastases to pleura [Fatal]
  - Cardio-respiratory arrest [Fatal]
  - Pleural effusion [Recovered/Resolved]

NARRATIVE: CASE EVENT DATE: 20230501
